FAERS Safety Report 13330884 (Version 2)
Quarter: 2017Q1

REPORT INFORMATION
  Report Type: Spontaneous
  Country: AT (occurrence: AT)
  Receive Date: 20170313
  Receipt Date: 20170314
  Transmission Date: 20170428
  Serious: Yes (Hospitalization)
  Sender: FDA-Public Use
  Company Number: AU-SA-2017SA039667

PATIENT
  Age: 72 Year
  Sex: Male

DRUGS (5)
  1. LOVENOX [Suspect]
     Active Substance: ENOXAPARIN SODIUM
     Indication: PULMONARY EMBOLISM
     Dosage: 80 MG IN MORNING AND 60 MG IN EVENING
     Route: 058
     Dates: start: 20160831, end: 20170117
  2. RITUXIMAB [Suspect]
     Active Substance: RITUXIMAB
     Indication: MALIGNANT LYMPHOID NEOPLASM
     Dosage: ONCE IN 4 WEEKS
     Route: 042
     Dates: start: 20160928, end: 20160928
  3. RITUXIMAB [Suspect]
     Active Substance: RITUXIMAB
     Indication: MALIGNANT LYMPHOID NEOPLASM
     Dosage: ONCE IN 4 WEEKS
     Route: 042
     Dates: start: 20160802, end: 20160802
  4. BENDAMUSTINE [Suspect]
     Active Substance: BENDAMUSTINE
     Indication: MALIGNANT LYMPHOID NEOPLASM
     Route: 042
     Dates: start: 20160929, end: 20160929
  5. BENDAMUSTINE [Suspect]
     Active Substance: BENDAMUSTINE
     Indication: MALIGNANT LYMPHOID NEOPLASM
     Dosage: ONCE IN 4 WEEKS
     Route: 042
     Dates: start: 20160803, end: 20160803

REACTIONS (6)
  - Liver disorder [Recovered/Resolved with Sequelae]
  - Aspartate aminotransferase increased [Not Recovered/Not Resolved]
  - Gamma-glutamyltransferase increased [Not Recovered/Not Resolved]
  - Liver disorder [Recovered/Resolved with Sequelae]
  - Hepatic steatosis [Not Recovered/Not Resolved]
  - Alanine aminotransferase increased [Not Recovered/Not Resolved]

NARRATIVE: CASE EVENT DATE: 20161123
